FAERS Safety Report 5842607-0 (Version None)
Quarter: 2008Q3

REPORT INFORMATION
  Report Type: 
  Country: None (occurrence: None)
  Receive Date: 20080812
  Receipt Date: 20080804
  Transmission Date: 20090109
  Serious: Yes (Disabling)
  Sender: FDA-Public Use
  Company Number: US-MERCK-0708USA04927

PATIENT
  Age: 71 Year
  Sex: Male
  Weight: 105 kg

DRUGS (11)
  1. ZETIA [Suspect]
     Indication: HYPERLIPIDAEMIA
     Route: 048
     Dates: start: 20060601, end: 20060101
  2. ZETIA [Suspect]
     Route: 048
     Dates: start: 20070101, end: 20070201
  3. ZETIA [Suspect]
     Indication: CORONARY ARTERY DISEASE
     Route: 048
     Dates: start: 20060601, end: 20060101
  4. ZETIA [Suspect]
     Route: 048
     Dates: start: 20070101, end: 20070201
  5. COZAAR [Concomitant]
     Indication: HYPERTENSION
     Route: 048
  6. COZAAR [Concomitant]
     Indication: CORONARY ARTERY DISEASE
     Route: 048
  7. TOPROL-XL [Concomitant]
     Indication: HYPERTENSION
     Route: 048
  8. TOPROL-XL [Concomitant]
     Indication: CORONARY ARTERY DISEASE
     Route: 048
  9. SYNTHROID [Concomitant]
     Indication: HYPOTHYROIDISM
     Route: 048
  10. SPIRIVA [Concomitant]
     Indication: CHRONIC OBSTRUCTIVE PULMONARY DISEASE
     Dates: start: 20060601
  11. ALBUTEROL [Concomitant]
     Indication: CHRONIC OBSTRUCTIVE PULMONARY DISEASE
     Dates: start: 20050301

REACTIONS (12)
  - ABDOMINAL PAIN [None]
  - ANOREXIA [None]
  - ASTHENIA [None]
  - BACK PAIN [None]
  - CONSTIPATION [None]
  - DEEP VEIN THROMBOSIS [None]
  - DIARRHOEA [None]
  - FLANK PAIN [None]
  - FLATULENCE [None]
  - INSOMNIA [None]
  - PELVIC PAIN [None]
  - WEIGHT DECREASED [None]
